FAERS Safety Report 4469018-7 (Version None)
Quarter: 2004Q4

REPORT INFORMATION
  Report Type: 
  Country: None (occurrence: None)
  Receive Date: 20041008
  Receipt Date: 20040928
  Transmission Date: 20050328
  Serious: Yes (Death)
  Sender: FDA-Public Use
  Company Number: US-JNJFOC-20040909725

PATIENT
  Age: 23 Year
  Sex: Male

DRUGS (2)
  1. DURAGESIC [Suspect]
     Indication: DRUG USE FOR UNKNOWN INDICATION
     Route: 065
  2. COCAINE [Suspect]

REACTIONS (2)
  - DRUG SCREEN POSITIVE [None]
  - NARCOTIC INTOXICATION [None]
